FAERS Safety Report 5046106-8 (Version None)
Quarter: 2006Q3

REPORT INFORMATION
  Report Type: 
  Country: None (occurrence: None)
  Receive Date: 20060710
  Receipt Date: 20051114
  Transmission Date: 20061208
  Serious: Yes (Hospitalization, Other)
  Sender: FDA-Public Use
  Company Number: JP-MERCK-0511USA02270

PATIENT
  Age: 44 Year
  Sex: Female

DRUGS (3)
  1. PRINIVIL [Suspect]
     Indication: HYPERTENSION
     Route: 048
     Dates: start: 20040801, end: 20041005
  2. DIOVAN [Suspect]
     Indication: HYPERTENSION
     Route: 048
     Dates: start: 20040801, end: 20041005
  3. QUINAPRIL HYDROCHLORIDE [Concomitant]
     Indication: HYPERTENSION
     Route: 065
     Dates: start: 19920101, end: 20040801

REACTIONS (5)
  - ANAEMIA [None]
  - ANGIONEUROTIC OEDEMA [None]
  - DRUG INTERACTION [None]
  - LEUKOCYTOSIS [None]
  - SMALL INTESTINE CARCINOMA [None]
